FAERS Safety Report 9999294 (Version 2)
Quarter: 2014Q2

REPORT INFORMATION
  Report Type: Spontaneous
  Country: DE (occurrence: None)
  Receive Date: 20140310
  Receipt Date: 20140430
  Transmission Date: 20141212
  Serious: Yes (Disabling)
  Sender: FDA-Public Use
  Company Number: NGX_02281_2014

PATIENT
  Age: 10 Year
  Sex: Male
  Weight: 34 kg

DRUGS (2)
  1. QUTENZA [Suspect]
     Indication: COMPLEX REGIONAL PAIN SYNDROME
     Route: 061
     Dates: start: 20140120, end: 20140120
  2. QUTENZA [Suspect]
     Indication: OFF LABEL USE
     Route: 061
     Dates: start: 20140120, end: 20140120

REACTIONS (3)
  - Swelling [None]
  - Allodynia [None]
  - Abasia [None]
